FAERS Safety Report 8229100-5 (Version None)
Quarter: 2012Q1

REPORT INFORMATION
  Report Type: 
  Country: None (occurrence: None)
  Receive Date: 20120322
  Receipt Date: 20120321
  Transmission Date: 20120608
  Serious: Yes (Hospitalization)
  Sender: FDA-Public Use
  Company Number: NL-JNJFOC-20111204080

PATIENT
  Age: 58 Year
  Sex: Female

DRUGS (14)
  1. NEULASTA [Suspect]
     Route: 058
     Dates: start: 20110512
  2. ACETAMINOPHEN [Concomitant]
     Route: 065
  3. ONDANSETRON [Concomitant]
     Route: 065
  4. DOXORUBICIN HCL [Suspect]
     Indication: PRODUCT USED FOR UNKNOWN INDICATION
     Route: 042
     Dates: start: 20110511
  5. CYCLOPHOSPHAMIDE [Suspect]
     Indication: PRODUCT USED FOR UNKNOWN INDICATION
     Route: 058
     Dates: start: 20110511
  6. PANTOPRAZOLE [Concomitant]
     Route: 065
  7. DICLOFENAC SODIUM [Concomitant]
     Route: 065
  8. IBUPROFEN [Concomitant]
     Route: 065
  9. TEMAZEPAM [Concomitant]
     Route: 065
  10. DOXORUBICIN HCL [Suspect]
     Indication: PRODUCT USED FOR UNKNOWN INDICATION
     Route: 042
     Dates: start: 20110511
  11. DEXAMETHASONE [Concomitant]
     Route: 065
  12. OXAZEPAM [Concomitant]
     Route: 065
  13. NEULASTA [Suspect]
     Indication: CHEMOTHERAPY
     Route: 058
  14. DOCETAXEL [Suspect]
     Indication: PRODUCT USED FOR UNKNOWN INDICATION
     Route: 065
     Dates: start: 20110511

REACTIONS (2)
  - PSEUDOMONAL BACTERAEMIA [None]
  - FEBRILE NEUTROPENIA [None]
